FAERS Safety Report 9887637 (Version 1)
Quarter: 2014Q1

REPORT INFORMATION
  Report Type: Spontaneous
  Country: US (occurrence: None)
  Receive Date: 20140206
  Receipt Date: 20140206
  Transmission Date: 20141002
  Serious: Yes (Death)
  Sender: FDA-Public Use
  Company Number: AUR-APL-2014-00835

PATIENT
  Age: 39 Year
  Sex: Female

DRUGS (3)
  1. CYCLOBENZAPRINE (CYCLOBENZAPRINE) [Suspect]
     Indication: PRODUCT USED FOR UNKNOWN INDICATION
  2. HYDROCODONE+PARACETAMOL(VODODIN) (UNKNOWN) (PARACETAMOL, HYDROCODONE BITARTRATE) [Suspect]
     Indication: PRODUCT USED FOR UNKNOWN INDICATION
     Route: 048
  3. VENLAFAXINE (VENLAFAXINE) [Suspect]

REACTIONS (2)
  - Exposure via ingestion [None]
  - Toxicity to various agents [None]
